FAERS Safety Report 6385374-7 (Version None)
Quarter: 2009Q4

REPORT INFORMATION
  Report Type: 
  Country: None (occurrence: None)
  Receive Date: 20091002
  Receipt Date: 20080902
  Transmission Date: 20100525
  Serious: No
  Sender: FDA-Public Use
  Company Number: US-ASTRAZENECA-2008UW17970

PATIENT
  Age: 62 Year
  Sex: Female
  Weight: 56.7 kg

DRUGS (1)
  1. ARIMIDEX [Suspect]
     Indication: GAMMA RADIATION THERAPY TO BREAST
     Route: 048
     Dates: start: 20050501

REACTIONS (3)
  - PAIN IN EXTREMITY [None]
  - POLYARTHRITIS [None]
  - TENDONITIS [None]
